FAERS Safety Report 4477060-5 (Version None)
Quarter: 2004Q4

REPORT INFORMATION
  Report Type: 
  Country: None (occurrence: None)
  Receive Date: 20041013
  Receipt Date: 20041008
  Transmission Date: 20050328
  Serious: Yes (Hospitalization)
  Sender: FDA-Public Use
  Company Number: WAES 00029804

PATIENT
  Age: 37 Year
  Sex: Male

DRUGS (1)
  1. TAB PLACEBO [Suspect]
     Route: 048
     Dates: start: 20000207, end: 20000209

REACTIONS (2)
  - ASTHMA [None]
  - CONDITION AGGRAVATED [None]
